FAERS Safety Report 9726041 (Version 1)
Quarter: 2013Q4

REPORT INFORMATION
  Report Type: Spontaneous
  Country: US (occurrence: US)
  Receive Date: 20131203
  Receipt Date: 20131203
  Transmission Date: 20140711
  Serious: No
  Sender: FDA-Public Use
  Company Number: US-BAYER-2013-141173

PATIENT
  Age: 23 Year
  Sex: Female

DRUGS (3)
  1. MIRENA [Suspect]
     Indication: DYSMENORRHOEA
     Dosage: 20 MCG/24HR, CONT
     Route: 015
     Dates: start: 20131007, end: 20131112
  2. MIRENA [Suspect]
     Indication: MENORRHAGIA
  3. MIRENA [Suspect]
     Indication: POLYCYSTIC OVARIES

REACTIONS (2)
  - Abdominal pain [Recovered/Resolved]
  - Device expulsion [Recovered/Resolved]
